FAERS Safety Report 13308546 (Version 1)
Quarter: 2017Q1

REPORT INFORMATION
  Report Type: Spontaneous
  Country: CA (occurrence: CA)
  Receive Date: 20170308
  Receipt Date: 20170308
  Transmission Date: 20170428
  Serious: Yes (Other)
  Sender: FDA-Public Use
  Company Number: CA-IMPAX LABORATORIES, INC-2017-IPXL-00526

PATIENT
  Age: 51 Year
  Sex: Male

DRUGS (1)
  1. ADRENACLICK [Suspect]
     Active Substance: EPINEPHRINE
     Indication: ANAPHYLACTIC REACTION
     Dosage: 300 ?G, UNK
     Route: 042

REACTIONS (3)
  - Electrocardiogram ST segment depression [Recovered/Resolved]
  - Atrial fibrillation [Recovered/Resolved]
  - Accidental overdose [None]
